FAERS Safety Report 5818519-5 (Version None)
Quarter: 2008Q3

REPORT INFORMATION
  Report Type: 
  Country: None (occurrence: None)
  Receive Date: 20080717
  Receipt Date: 20080708
  Transmission Date: 20090109
  Serious: Yes (Other)
  Sender: FDA-Public Use
  Company Number: 2008-02179

PATIENT
  Age: 51 Year
  Sex: Female
  Weight: 75.1 kg

DRUGS (7)
  1. VELCADE [Suspect]
     Indication: ADENOID CYSTIC CARCINOMA
     Dosage: 1.3 MG/M2, INTRAVENOUS
     Route: 042
     Dates: start: 20080401, end: 20080527
  2. ADRIAMYCIN PFS [Suspect]
     Indication: ADENOID CYSTIC CARCINOMA
     Dates: start: 20080408, end: 20080527
  3. COMPAZINE [Concomitant]
  4. EFFEXOR [Concomitant]
  5. FENTANYL [Concomitant]
  6. DILAUDID [Concomitant]
  7. LACTULOSE [Concomitant]

REACTIONS (9)
  - DISCOMFORT [None]
  - DRUG HYPERSENSITIVITY [None]
  - FATIGUE [None]
  - HAEMATOCRIT DECREASED [None]
  - MUCOSAL INFLAMMATION [None]
  - PAIN [None]
  - PYREXIA [None]
  - RASH ERYTHEMATOUS [None]
  - WHITE BLOOD CELL COUNT DECREASED [None]
